FAERS Safety Report 5303082-8 (Version None)
Quarter: 2007Q1

REPORT INFORMATION
  Report Type: 
  Country: None (occurrence: None)
  Receive Date: 20070201
  Receipt Date: 20061130
  Transmission Date: 20070707
  Serious: No
  Sender: FDA-Public Use
  Company Number: 2006PV026096

PATIENT
  Age: 71 Year
  Sex: Male

DRUGS (5)
  1. BYETTA [Suspect]
     Indication: DIABETES MELLITUS NON-INSULIN-DEPENDENT
     Dosage: 5 MCG;BID;SC
     Route: 058
     Dates: start: 20061028, end: 20061121
  2. AVANDIA [Suspect]
     Indication: DIABETES MELLITUS NON-INSULIN-DEPENDENT
     Dosage: 1 MG;QD;PO
     Route: 048
     Dates: start: 20050101, end: 20061028
  3. HUMALOG [Concomitant]
  4. HUMULIN N [Concomitant]
  5. METFORMIN HCL [Concomitant]

REACTIONS (4)
  - DIZZINESS [None]
  - DRUG INTERACTION [None]
  - NAUSEA [None]
  - RETCHING [None]
